FAERS Safety Report 17829586 (Version 1)
Quarter: 2020Q2

REPORT INFORMATION
  Report Type: Spontaneous
  Country: US (occurrence: US)
  Receive Date: 20200527
  Receipt Date: 20200527
  Transmission Date: 20200714
  Serious: No
  Sender: FDA-Public Use
  Company Number: US-TEVA-2020-US-1240952

PATIENT

DRUGS (2)
  1. LORAZEPAM TEVA [Suspect]
     Active Substance: LORAZEPAM
     Route: 065
  2. LORAZEPAM TEVA [Suspect]
     Active Substance: LORAZEPAM
     Route: 065

REACTIONS (3)
  - Product substitution issue [Unknown]
  - Initial insomnia [Unknown]
  - Product quality issue [Unknown]
